FAERS Safety Report 8203775-9 (Version None)
Quarter: 2012Q1

REPORT INFORMATION
  Report Type: 
  Country: None (occurrence: None)
  Receive Date: 20120313
  Receipt Date: 20120305
  Transmission Date: 20120608
  Serious: Yes (Other)
  Sender: FDA-Public Use
  Company Number: US-BAYER-2011-085046

PATIENT
  Age: 18 Year
  Sex: Female

DRUGS (7)
  1. SULFAMETHOXAZOLE [Concomitant]
  2. AMOXICILLIN [Concomitant]
  3. HYDROCODONE BITARTRATE + ACETAMINOPHEN [Concomitant]
  4. SKELAXIN [Concomitant]
  5. PHENAZOPYRIDINE HCL TAB [Concomitant]
  6. YAZ [Suspect]
     Dosage: UNK
     Dates: start: 20080601, end: 20080901
  7. BELLADONNA EXTRACT W/PHENOBARBITONE [Concomitant]

REACTIONS (4)
  - INJURY [None]
  - GALLBLADDER INJURY [None]
  - PAIN [None]
  - CHOLECYSTITIS CHRONIC [None]
